FAERS Safety Report 6434027-5 (Version None)
Quarter: 2009Q4

REPORT INFORMATION
  Report Type: 
  Country: None (occurrence: None)
  Receive Date: 20091109
  Receipt Date: 20091109
  Transmission Date: 20100525
  Serious: No
  Sender: FDA-Public Use
  Company Number: None

PATIENT

DRUGS (1)
  1. GABAPENTIN 300MG MANUFACTURER APO PEX [Suspect]
     Indication: HYPOAESTHESIA
     Dosage: 2 A DAY
     Dates: start: 20091005, end: 20091009

REACTIONS (8)
  - COORDINATION ABNORMAL [None]
  - DRUG INEFFECTIVE [None]
  - DRY MOUTH [None]
  - GAIT DISTURBANCE [None]
  - GASTROINTESTINAL DISORDER [None]
  - INCREASED APPETITE [None]
  - SOMNOLENCE [None]
  - VISION BLURRED [None]
